FAERS Safety Report 24735225 (Version 1)
Quarter: 2024Q4

REPORT INFORMATION
  Report Type: Report from Study
  Country: JP (occurrence: JP)
  Receive Date: 20241215
  Receipt Date: 20241215
  Transmission Date: 20250114
  Serious: Yes (Hospitalization)
  Sender: ABBVIE
  Company Number: JP-ABBVIE-5674595

PATIENT
  Age: 67 Year
  Sex: Female
  Weight: 49 kg

DRUGS (33)
  1. FOSCARBIDOPA\FOSLEVODOPA [Suspect]
     Active Substance: FOSCARBIDOPA\FOSLEVODOPA
     Indication: Parkinson^s disease
     Dosage: STANDARD: 0.45 ML/H, OTHER: 0.48 ML/H, DURING NIGHT: 0.17 ML/H
     Route: 058
     Dates: start: 20231226
  2. FOSCARBIDOPA\FOSLEVODOPA [Suspect]
     Active Substance: FOSCARBIDOPA\FOSLEVODOPA
     Dosage: STANDARD: 0.44 ML/H, OTHER: 0.46 ML/H, DURING NIGHT: 0.17 ML/H, LAST DOSE ADMINISTERED: NOV 2023
     Route: 058
     Dates: start: 20231124
  3. FOSCARBIDOPA\FOSLEVODOPA [Suspect]
     Active Substance: FOSCARBIDOPA\FOSLEVODOPA
     Dosage: STANDARD: 0.44 ML/H, DURING NIGHT: 0.17 ML/H, LAST DOSE ADMINISTERED: NOV 2023
     Route: 058
     Dates: start: 20231117
  4. FOSCARBIDOPA\FOSLEVODOPA [Suspect]
     Active Substance: FOSCARBIDOPA\FOSLEVODOPA
     Dosage: STANDARD: 0.44 ML/H, OTHER: 0.47 ML/H, DURING NIGHT: 0.17 ML/H, LAST DOSE ADMINISTERED: NOV 2023
     Route: 058
     Dates: start: 20231123
  5. FOSCARBIDOPA\FOSLEVODOPA [Suspect]
     Active Substance: FOSCARBIDOPA\FOSLEVODOPA
     Dosage: STANDARD: 0.43 ML/H, OTHER: 0.46 ML/H, DURING NIGHT: 0.15 ML/H, LAST DOSE ADMINISTERED: MAR 2024
     Route: 058
     Dates: start: 20240305
  6. FOSCARBIDOPA\FOSLEVODOPA [Suspect]
     Active Substance: FOSCARBIDOPA\FOSLEVODOPA
     Dosage: STANDARD: 0.43 ML/H, DURING NIGHT: 0.17 ML/H, LAST DOSE ADMINISTERED: NOV 2023
     Route: 058
     Dates: start: 20231115
  7. FOSCARBIDOPA\FOSLEVODOPA [Suspect]
     Active Substance: FOSCARBIDOPA\FOSLEVODOPA
     Dosage: STANDARD: 0.41 ML/H, DURING NIGHT: 0.15 ML/H, LAST DOSE ADMINISTERED: NOV 2023
     Route: 058
     Dates: start: 20231107
  8. FOSCARBIDOPA\FOSLEVODOPA [Suspect]
     Active Substance: FOSCARBIDOPA\FOSLEVODOPA
     Dosage: STANDARD: 0.44 ML/H, DURING NIGHT: 0.15 ML/H, LAST DOSE ADMINISTERED: NOV 2023
     Route: 058
     Dates: start: 20231109
  9. FOSCARBIDOPA\FOSLEVODOPA [Suspect]
     Active Substance: FOSCARBIDOPA\FOSLEVODOPA
     Dosage: STANDARD: 0.43 ML/H, DURING NIGHT: 0.15 ML/H, LAST DOSE ADMINISTERED: NOV 2023
     Route: 058
     Dates: start: 20231113
  10. FOSCARBIDOPA\FOSLEVODOPA [Suspect]
     Active Substance: FOSCARBIDOPA\FOSLEVODOPA
     Dosage: STANDARD: 0.44 ML/H, OTHER: 0.47 ML/H, DURING NIGHT: 0.15 ML/H, LAST DOSE ADMINISTERED: DEC 2023
     Route: 058
     Dates: start: 20231215
  11. FOSCARBIDOPA\FOSLEVODOPA [Suspect]
     Active Substance: FOSCARBIDOPA\FOSLEVODOPA
     Dosage: STANDARD: 0.45 ML/H, DURING NIGHT: 0.17 ML/H, LAST DOSE ADMINISTERED: NOV 2023
     Route: 058
     Dates: start: 20231120
  12. FOSCARBIDOPA\FOSLEVODOPA [Suspect]
     Active Substance: FOSCARBIDOPA\FOSLEVODOPA
     Dosage: STANDARD: 0.45 ML/H, OTHER: 0.47 ML/H, DURING NIGHT: 0.17 ML/H, LAST DOSE ADMINISTERED: NOV 2023
     Route: 058
     Dates: start: 20231121
  13. FOSCARBIDOPA\FOSLEVODOPA [Suspect]
     Active Substance: FOSCARBIDOPA\FOSLEVODOPA
     Dosage: STANDARD: 0.44 ML/H, DURING NIGHT: 0.47 ML/H, DURING NIGHT: 0.17 ML/H
     Route: 058
     Dates: start: 20231127, end: 20231208
  14. FOSCARBIDOPA\FOSLEVODOPA [Suspect]
     Active Substance: FOSCARBIDOPA\FOSLEVODOPA
     Dosage: STANDARD: 0.40 ML/H, OTHER: 0.42 ML/H, DURING NIGHT: 0.15 ML/H
     Route: 058
     Dates: start: 20240610
  15. FOSCARBIDOPA\FOSLEVODOPA [Suspect]
     Active Substance: FOSCARBIDOPA\FOSLEVODOPA
     Dosage: STANDARD: 0.44 ML/H, OTHER: 0.47 ML/H, DURING NIGHT: 0.15 ML/H, LAST DOSE ADMINISTERED: 2024
     Route: 058
     Dates: start: 20240312
  16. FOSCARBIDOPA\FOSLEVODOPA [Suspect]
     Active Substance: FOSCARBIDOPA\FOSLEVODOPA
     Dosage: STANDARD: 0.42 ML/H, OTHER: 0.44 ML/H, DURING NIGHT: 0.15 ML/H, LAST DOSE ADMINISTERED: JUN 2024
     Route: 058
     Dates: start: 20240604
  17. GLYCERIN [Concomitant]
     Active Substance: GLYCERIN
     Indication: Product used for unknown indication
     Dosage: FORM STRENGTH: 60 MILLILITER (S)
     Route: 054
  18. DONEPEZIL HYDROCHLORIDE [Concomitant]
     Active Substance: DONEPEZIL HYDROCHLORIDE
     Indication: Product used for unknown indication
     Dosage: FORM STRENGTH: 5 MILLIGRAM
     Route: 048
  19. DROXIDOPA [Concomitant]
     Active Substance: DROXIDOPA
     Indication: Parkinson^s disease
     Dosage: 4 TABLET
     Route: 048
     Dates: start: 20231220
  20. DROXIDOPA [Concomitant]
     Active Substance: DROXIDOPA
     Indication: Parkinson^s disease
     Dosage: 200 MILLIGRAM
     Route: 048
     Dates: start: 20231211, end: 20231218
  21. LOXOPROFEN SODIUM DIHYDRATE [Concomitant]
     Active Substance: LOXOPROFEN SODIUM DIHYDRATE
     Indication: Pain in extremity
     Route: 062
  22. Carbidopa hydrate and levodopa [Concomitant]
     Indication: Parkinson^s disease
     Dosage: 200 MILLIGRAM
     Route: 048
  23. Carbidopa hydrate and levodopa [Concomitant]
     Indication: Parkinson^s disease
     Dosage: 300MG
     Route: 048
     Dates: start: 20231209, end: 20231223
  24. Carbidopa hydrate and levodopa [Concomitant]
     Indication: Parkinson^s disease
     Dosage: 400 MILLIGRAM
     Route: 048
     Dates: start: 20231209, end: 20231223
  25. Carbidopa hydrate and levodopa [Concomitant]
     Indication: Parkinson^s disease
     Dosage: TIME INTERVAL: 0.33333333 DAYS: 300 MILLIGRAM
     Route: 048
     Dates: start: 20231209, end: 20231223
  26. Carbidopa hydrate and levodopa [Concomitant]
     Indication: Parkinson^s disease
     Dosage: 50 MILLIGRAM
     Route: 048
  27. Carbidopa hydrate and levodopa [Concomitant]
     Indication: Parkinson^s disease
     Dosage: TIME INTERVAL: 0.33333333 DAYS: 450 MILLIGRAM
     Route: 048
  28. POLAPREZINC [Concomitant]
     Active Substance: POLAPREZINC
     Indication: Hypozincaemia
     Dosage: FORM STRENGTH: 75 MILLIGRAM
     Route: 048
  29. Pyridoxal phosphate hydrate [Concomitant]
     Indication: Product used for unknown indication
     Dosage: FORM STRENGTH: 10 MILLIGRAM
     Route: 048
  30. MAGNESIUM OXIDE [Concomitant]
     Active Substance: MAGNESIUM OXIDE
     Indication: Product used for unknown indication
     Dosage: FORM STRENGTH: 330 MILLIGRAM
     Route: 048
  31. CLONAZEPAM [Concomitant]
     Active Substance: CLONAZEPAM
     Indication: Insomnia
     Dosage: FORM STRENGTH: 0.5 MILLIGRAM
     Route: 048
  32. LEMBOREXANT [Concomitant]
     Active Substance: LEMBOREXANT
     Indication: Product used for unknown indication
     Dosage: FORM STRENGTH :2.5 MILLIGRAM
     Route: 048
  33. RIVASTIGMINE [Concomitant]
     Active Substance: RIVASTIGMINE
     Indication: Product used for unknown indication
     Dosage: FORM STRENGTH: 9 MILLIGRAM
     Route: 062

REACTIONS (7)
  - Mania [Recovering/Resolving]
  - Infusion site cellulitis [Recovered/Resolved]
  - Delusion [Recovering/Resolving]
  - Mania [Recovering/Resolving]
  - Delusion [Recovering/Resolving]
  - Hallucination [Recovering/Resolving]
  - Infusion site erythema [Recovered/Resolved]

NARRATIVE: CASE EVENT DATE: 20231201
